FAERS Safety Report 5697710-5 (Version None)
Quarter: 2008Q2

REPORT INFORMATION
  Report Type: 
  Country: None (occurrence: None)
  Receive Date: 20080408
  Receipt Date: 20080404
  Transmission Date: 20081010
  Serious: Yes (Life-Threatening, Hospitalization, Other)
  Sender: FDA-Public Use
  Company Number: B0505089B

PATIENT
  Age: 55 Year
  Sex: Female
  Weight: 82 kg

DRUGS (1)
  1. TOPOTECAN [Suspect]
     Dosage: 1.25MG CYCLIC
     Route: 042
     Dates: start: 20070529, end: 20080218

REACTIONS (3)
  - METASTASES TO SPLEEN [None]
  - METASTATIC NEOPLASM [None]
  - TUMOUR MARKER INCREASED [None]
